FAERS Safety Report 25691172 (Version 1)
Quarter: 2025Q3

REPORT INFORMATION
  Report Type: Spontaneous
  Country: PR (occurrence: None)
  Receive Date: 20250815
  Receipt Date: 20250815
  Transmission Date: 20251021
  Serious: Yes (Hospitalization)
  Sender: FDA-CTU
  Company Number: None

PATIENT
  Age: 54 Year
  Sex: Male
  Weight: 115.67 kg

DRUGS (4)
  1. TEMOZOLOMIDE [Suspect]
     Active Substance: TEMOZOLOMIDE
     Indication: Brain neoplasm malignant
     Route: 048
     Dates: start: 20250111
  2. METHIMAZOLE 5MG TABLETS [Concomitant]
  3. METOPROLOL TARTRATE 50MG TABLETS [Concomitant]
  4. SEPTRA REG STRENGTH (400-80MG) TAB [Concomitant]

REACTIONS (1)
  - Hospitalisation [None]
